FAERS Safety Report 17473312 (Version 1)
Quarter: 2020Q1

REPORT INFORMATION
  Report Type: Spontaneous
  Country: US (occurrence: US)
  Receive Date: 20200218
  Receipt Date: 20200218
  Transmission Date: 20200409
  Serious: Yes (Hospitalization, Disabling, Other)
  Sender: FDA-Public Use
  Company Number: None

PATIENT
  Age: 56 Year
  Sex: Male
  Weight: 83.91 kg

DRUGS (2)
  1. LYRICA [Suspect]
     Active Substance: PREGABALIN
     Indication: THERAPY CHANGE
     Route: 048
     Dates: start: 20190201, end: 20191001
  2. GABAPENTIN 100MG [Suspect]
     Active Substance: GABAPENTIN
     Indication: THERAPY CHANGE
     Route: 048
     Dates: start: 20191001

REACTIONS (2)
  - Dyspnoea [None]
  - Apnoeic attack [None]

NARRATIVE: CASE EVENT DATE: 20200102
